FAERS Safety Report 6062732-1 (Version None)
Quarter: 2009Q1

REPORT INFORMATION
  Report Type: 
  Country: None (occurrence: None)
  Receive Date: 20090203
  Receipt Date: 20090127
  Transmission Date: 20090719
  Serious: Yes (Life-Threatening, Hospitalization)
  Sender: FDA-Public Use
  Company Number: JP-ASTRAZENECA-2009AP00604

PATIENT
  Age: 80 Year
  Sex: Female

DRUGS (3)
  1. IRESSA [Suspect]
     Indication: LUNG ADENOCARCINOMA
     Route: 048
     Dates: start: 20081226, end: 20090105
  2. OMEPRAL [Concomitant]
     Route: 048
  3. ADOAIR [Concomitant]
     Route: 055

REACTIONS (2)
  - HEPATIC FUNCTION ABNORMAL [None]
  - INTERSTITIAL LUNG DISEASE [None]
